FAERS Safety Report 21753869 (Version 1)
Quarter: 2022Q4

REPORT INFORMATION
  Report Type: Spontaneous
  Country: US (occurrence: None)
  Receive Date: 20221219
  Receipt Date: 20221219
  Transmission Date: 20230112
  Serious: Yes (Hospitalization)
  Sender: FDA-Public Use
  Company Number: None

PATIENT
  Sex: Male

DRUGS (8)
  1. HUMIRA [Suspect]
     Active Substance: ADALIMUMAB
     Indication: Colitis ulcerative
     Dosage: 40/0.4 MG/ML??INECT 1 PEN (40 MG) SUBCUTANEOUSLY (UNDER THE SKIN) ONCE EVERY 7 DAYS? ?
     Route: 058
     Dates: start: 20210323
  2. AMLOD/VALSAR/HCTZ [Concomitant]
  3. COLCHICINE [Concomitant]
     Active Substance: COLCHICINE
  4. IBUPROFEN [Concomitant]
     Active Substance: IBUPROFEN
  5. HYDROCHLOROTHIAZIDE\LOSARTAN POTASSIUM [Concomitant]
     Active Substance: HYDROCHLOROTHIAZIDE\LOSARTAN POTASSIUM
  6. METOPROL TAR [Concomitant]
  7. PANTOPRAZOLE [Concomitant]
     Active Substance: PANTOPRAZOLE
  8. PRAVASTATIN [Concomitant]
     Active Substance: PRAVASTATIN

REACTIONS (1)
  - Hospitalisation [None]
